FAERS Safety Report 7318805-6 (Version None)
Quarter: 2011Q1

REPORT INFORMATION
  Report Type: 
  Country: None (occurrence: None)
  Receive Date: 20110228
  Receipt Date: 20100621
  Transmission Date: 20110831
  Serious: No
  Sender: FDA-Public Use
  Company Number: A0868033A

PATIENT
  Sex: Female

DRUGS (2)
  1. HORMONE [Suspect]
     Route: 065
  2. IMITREX [Suspect]
     Route: 065

REACTIONS (5)
  - PRURITUS [None]
  - LIP SWELLING [None]
  - ERYTHEMA [None]
  - URTICARIA [None]
  - REACTION TO AZO-DYES [None]
